FAERS Safety Report 6982435-6 (Version None)
Quarter: 2010Q3

REPORT INFORMATION
  Report Type: 
  Country: None (occurrence: None)
  Receive Date: 20100914
  Receipt Date: 20100106
  Transmission Date: 20110219
  Serious: No
  Sender: FDA-Public Use
  Company Number: US-PFIZER INC-2010002714

PATIENT
  Sex: Male
  Weight: 99.773 kg

DRUGS (2)
  1. LYRICA [Suspect]
     Indication: FIBROMYALGIA
     Dosage: 75 MG, 2X/DAY
     Route: 048
     Dates: start: 20090101
  2. PERCOCET [Concomitant]
     Dosage: UNK

REACTIONS (2)
  - MALAISE [None]
  - PAIN [None]
